FAERS Safety Report 14300601 (Version 2)
Quarter: 2018Q3

REPORT INFORMATION
  Report Type: Report from Study
  Country: US (occurrence: US)
  Receive Date: 20171219
  Receipt Date: 20180703
  Transmission Date: 20181010
  Serious: Yes (Other)
  Sender: FDA-Public Use
  Company Number: US-BRISTOL-MYERS SQUIBB COMPANY-BMS-2017-113405

PATIENT
  Age: 68 Year
  Sex: Male
  Weight: 87 kg

DRUGS (3)
  1. CETUXIMAB. [Suspect]
     Active Substance: CETUXIMAB
     Indication: SQUAMOUS CELL CARCINOMA OF HEAD AND NECK
     Dosage: 1 DF, UNK
     Route: 065
     Dates: start: 20170612, end: 20170717
  2. NIVOLUMAB [Suspect]
     Active Substance: NIVOLUMAB
     Indication: SQUAMOUS CELL CARCINOMA OF HEAD AND NECK
     Dosage: 1 DF, UNK
     Route: 065
     Dates: start: 20170605, end: 20170717
  3. CISPLATIN. [Suspect]
     Active Substance: CISPLATIN
     Indication: SQUAMOUS CELL CARCINOMA OF HEAD AND NECK
     Route: 065

REACTIONS (6)
  - Vomiting [Recovered/Resolved]
  - Hypocalcaemia [Recovered/Resolved]
  - Hypoalbuminaemia [Recovered/Resolved]
  - Dermatitis acneiform [Recovered/Resolved]
  - Dysphagia [Recovered/Resolved]
  - Hypokalaemia [Recovered/Resolved]

NARRATIVE: CASE EVENT DATE: 20170614
